FAERS Safety Report 4658763-6 (Version None)
Quarter: 2005Q2

REPORT INFORMATION
  Report Type: 
  Country: None (occurrence: None)
  Receive Date: 20050509
  Receipt Date: 20050426
  Transmission Date: 20051028
  Serious: Yes (Hospitalization)
  Sender: FDA-Public Use
  Company Number: TPA2005A00498

PATIENT
  Age: 37 Year
  Sex: Female

DRUGS (3)
  1. PIOGLITAZONE HCL [Suspect]
     Dosage: 45 MG, 1 IN 1D, PER ORAL
     Route: 048
  2. DEXAMETHASONE [Concomitant]
  3. CORTICOTROPIN-RELEASNG HORMONE (CORTICOTROPIN) (100 MICROGRAM, INJECTI [Concomitant]

REACTIONS (1)
  - PITUITARY TUMOUR BENIGN [None]
